FAERS Safety Report 4507997-X (Version None)
Quarter: 2004Q4

REPORT INFORMATION
  Report Type: 
  Country: None (occurrence: None)
  Receive Date: 20041123
  Receipt Date: 20041118
  Transmission Date: 20050328
  Serious: Yes (Life-Threatening, Hospitalization, Disabling)
  Sender: FDA-Public Use
  Company Number: US-MERCK-0411USA03243

PATIENT
  Age: 43 Year
  Sex: Male

DRUGS (3)
  1. VIOXX [Suspect]
     Indication: JOINT INJURY
     Route: 048
     Dates: start: 19990101, end: 20010201
  2. VIOXX [Suspect]
     Route: 048
     Dates: start: 20010301, end: 20010501
  3. INDOCIN [Concomitant]
     Route: 065
     Dates: start: 20010201

REACTIONS (1)
  - CEREBROVASCULAR ACCIDENT [None]
